FAERS Safety Report 8101094-2 (Version None)
Quarter: 2012Q1

REPORT INFORMATION
  Report Type: 
  Country: None (occurrence: None)
  Receive Date: 20120129
  Receipt Date: 20110909
  Transmission Date: 20120608
  Serious: No
  Sender: FDA-Public Use
  Company Number: US-ABBOTT-11P-163-0852886-00

PATIENT
  Sex: Male
  Weight: 70.37 kg

DRUGS (3)
  1. HUMIRA [Suspect]
     Indication: PSORIATIC ARTHROPATHY
     Route: 058
     Dates: start: 20110815
  2. UNKNOWN CARDIAC MEDICATION [Concomitant]
     Indication: CARDIOVASCULAR EVENT PROPHYLAXIS
  3. UNKNOWN MEDICATION [Concomitant]
     Indication: BACK PAIN

REACTIONS (1)
  - NAUSEA [None]
